FAERS Safety Report 12337587 (Version 1)
Quarter: 2016Q2

REPORT INFORMATION
  Report Type: Spontaneous
  Country: US (occurrence: None)
  Receive Date: 20160504
  Receipt Date: 20160504
  Transmission Date: 20160815
  Serious: No
  Sender: FDA-Public Use
  Company Number: None

PATIENT
  Age: 60 Year
  Sex: Male

DRUGS (1)
  1. ZYTIGA [Suspect]
     Active Substance: ABIRATERONE ACETATE
     Indication: PROSTATE CANCER
     Route: 048
     Dates: start: 20160201, end: 20160407

REACTIONS (5)
  - Stomatitis [None]
  - Headache [None]
  - Nausea [None]
  - Haemorrhage [None]
  - Vision blurred [None]

NARRATIVE: CASE EVENT DATE: 20160206
